FAERS Safety Report 5222521-4 (Version None)
Quarter: 2007Q1

REPORT INFORMATION
  Report Type: 
  Country: None (occurrence: None)
  Receive Date: 20070129
  Receipt Date: 20070123
  Transmission Date: 20070707
  Serious: Yes (Other)
  Sender: FDA-Public Use
  Company Number: US-BRISTOL-MYERS SQUIBB COMPANY-13472345

PATIENT
  Age: 74 Year
  Sex: Female

DRUGS (6)
  1. DASATINIB [Suspect]
     Indication: CHRONIC MYELOID LEUKAEMIA
     Route: 048
     Dates: start: 20060629, end: 20060801
  2. PREVACID [Concomitant]
     Dates: start: 20060726
  3. ACYCLOVIR [Concomitant]
     Dates: start: 20060726
  4. CALCITONIN-SALMON [Concomitant]
     Dates: start: 20060701
  5. LEVAQUIN [Concomitant]
     Dates: start: 20060711
  6. DIFLUCAN [Concomitant]
     Dates: start: 20060711

REACTIONS (1)
  - SUBDURAL HAEMATOMA [None]
